FAERS Safety Report 25017063 (Version 1)
Quarter: 2025Q1

REPORT INFORMATION
  Report Type: Spontaneous
  Country: US (occurrence: US)
  Receive Date: 20250227
  Receipt Date: 20250227
  Transmission Date: 20250408
  Serious: Yes (Other)
  Sender: TEVA
  Company Number: US-TEVA-VS-3300994

PATIENT
  Age: 77 Year
  Sex: Female
  Weight: 64.864 kg

DRUGS (1)
  1. AUSTEDO [Suspect]
     Active Substance: DEUTETRABENAZINE
     Indication: Huntington^s disease
     Dosage: FORM STRENGTH: 6 MG AND 12 MG
     Route: 065

REACTIONS (2)
  - Huntington^s disease [Unknown]
  - Speech disorder [Unknown]
